FAERS Safety Report 25373874 (Version 2)
Quarter: 2025Q2

REPORT INFORMATION
  Report Type: Spontaneous
  Country: US (occurrence: US)
  Receive Date: 20250529
  Receipt Date: 20250603
  Transmission Date: 20250717
  Serious: Yes (Other)
  Sender: PFIZER
  Company Number: US-PFIZER INC-202500110335

PATIENT
  Age: 69 Year
  Sex: Male

DRUGS (4)
  1. MEKTOVI [Suspect]
     Active Substance: BINIMETINIB
     Indication: Anaplastic thyroid cancer
  2. MEKTOVI [Suspect]
     Active Substance: BINIMETINIB
     Indication: Lymphoma
     Dosage: TAKE 3 TABLETS OF 15 MG (45 MG) TWICE DAY.
     Route: 048
  3. NEURONTIN [Concomitant]
     Active Substance: GABAPENTIN
     Dosage: TAKE 2 CAPSULES (600 MG) BY MOUTH 3 TIMES A DAY.
     Route: 048
  4. NEURONTIN [Concomitant]
     Active Substance: GABAPENTIN
     Dosage: TAKE 2 CAPSULES (600 MG) BY MOUTH EVERY 6 (SIX) HOURS.
     Route: 048

REACTIONS (2)
  - Metastases to lung [Unknown]
  - Off label use [Unknown]
